FAERS Safety Report 13455326 (Version 3)
Quarter: 2017Q2

REPORT INFORMATION
  Report Type: Spontaneous
  Country: US (occurrence: US)
  Receive Date: 20170419
  Receipt Date: 20170623
  Transmission Date: 20170830
  Serious: No
  Sender: FDA-Public Use
  Company Number: US-PFIZER INC-2017165689

PATIENT
  Age: 86 Year
  Sex: Male
  Weight: 75 kg

DRUGS (2)
  1. ALAVERT ALLERGY [Suspect]
     Active Substance: LORATADINE
     Indication: RHINITIS ALLERGIC
     Dosage: 10 MG, 2X/DAY
     Route: 048
     Dates: end: 20170412
  2. ALAVERT ALLERGY [Suspect]
     Active Substance: LORATADINE
     Indication: SECRETION DISCHARGE

REACTIONS (6)
  - Myalgia [Not Recovered/Not Resolved]
  - Intentional product misuse [Unknown]
  - Limb discomfort [Unknown]
  - Fatigue [Not Recovered/Not Resolved]
  - Drug effective for unapproved indication [Unknown]
  - Energy increased [Unknown]
